FAERS Safety Report 4542159-1 (Version None)
Quarter: 2004Q4

REPORT INFORMATION
  Report Type: 
  Country: None (occurrence: None)
  Receive Date: 20041227
  Receipt Date: 20041221
  Transmission Date: 20050328
  Serious: Yes (Hospitalization)
  Sender: FDA-Public Use
  Company Number: 209933

PATIENT
  Age: 67 Year
  Sex: Female
  Weight: 71 kg

DRUGS (9)
  1. MABTHERA (RITUXUIMAB) CONC FOR SOLUTION FOR INFUSION [Suspect]
     Indication: LYMPHOMA
     Dosage: 700 MG, INTRAVENOUS
     Route: 042
     Dates: start: 20031205, end: 20040414
  2. ELAVIL [Concomitant]
  3. INEXIUM (ESOMEPRAZOLE MAGNESIUM) [Concomitant]
  4. VASTAREL (TRIMETAZIDINE) [Concomitant]
  5. DOLIPRANE (ACETAMINOPHEN) [Concomitant]
  6. PREDNISONE TAB [Concomitant]
  7. ONCOVIN [Concomitant]
  8. ADRIABLASTINE (DOXORUBICIN HYDROCHLORIDE, DOXORUBICIN) [Concomitant]
  9. CYCLOPHOSPHAMIDE [Concomitant]

REACTIONS (9)
  - BIOPSY BONE MARROW ABNORMAL [None]
  - BLOOD IMMUNOGLOBULIN G INCREASED [None]
  - CHEST PAIN [None]
  - CHILLS [None]
  - DIARRHOEA [None]
  - FULL BLOOD COUNT ABNORMAL [None]
  - HYPERTHERMIA [None]
  - NEUTROPENIA [None]
  - WHITE BLOOD CELL COUNT DECREASED [None]
